FAERS Safety Report 25062999 (Version 1)
Quarter: 2025Q1

REPORT INFORMATION
  Report Type: Spontaneous
  Country: US (occurrence: US)
  Receive Date: 20250311
  Receipt Date: 20250311
  Transmission Date: 20250408
  Serious: Yes (Other)
  Sender: RANBAXY
  Company Number: US-SUN PHARMACEUTICAL INDUSTRIES LTD-2025R1-497608

PATIENT
  Age: 86 Year
  Sex: Female

DRUGS (1)
  1. GEMCITABINE [Suspect]
     Active Substance: GEMCITABINE
     Indication: Blastic plasmacytoid dendritic cell neoplasia
     Route: 065
     Dates: start: 20140515

REACTIONS (3)
  - Disease progression [Unknown]
  - Oedema peripheral [Unknown]
  - Off label use [Unknown]
